FAERS Safety Report 13395938 (Version 1)
Quarter: 2017Q2

REPORT INFORMATION
  Report Type: Spontaneous
  Country: US (occurrence: US)
  Receive Date: 20170403
  Receipt Date: 20170403
  Transmission Date: 20170830
  Serious: Yes (Hospitalization, Other)
  Sender: FDA-Public Use
  Company Number: PHEH2017US008653

PATIENT
  Age: 53 Year
  Sex: Male

DRUGS (1)
  1. COSENTYX [Suspect]
     Active Substance: SECUKINUMAB
     Indication: PSORIASIS
     Dosage: 300 MG, QMO
     Route: 058
     Dates: start: 20160408, end: 20160709

REACTIONS (3)
  - Drug-induced liver injury [Recovering/Resolving]
  - Cholelithiasis [Unknown]
  - Pancreatic pseudocyst [Unknown]

NARRATIVE: CASE EVENT DATE: 20160709
